FAERS Safety Report 18968918 (Version 2)
Quarter: 2021Q4

REPORT INFORMATION
  Report Type: Report from Study
  Country: US (occurrence: US)
  Receive Date: 20210304
  Receipt Date: 20211019
  Transmission Date: 20220303
  Serious: Yes (Other)
  Sender: FDA-Public Use
  Company Number: US-TAKEDA-US202017849

PATIENT
  Sex: Female

DRUGS (1)
  1. HUMAN IMMUNOGLOBULIN G [Suspect]
     Active Substance: HUMAN IMMUNOGLOBULIN G
     Indication: Immunodeficiency common variable
     Route: 042

REACTIONS (6)
  - Neoplasm malignant [Unknown]
  - Renal disorder [Unknown]
  - Lung disorder [Unknown]
  - Injury associated with device [Unknown]
  - Fatigue [Unknown]
  - Inappropriate schedule of product administration [Unknown]
